FAERS Safety Report 5398671-9 (Version None)
Quarter: 2007Q3

REPORT INFORMATION
  Report Type: 
  Country: None (occurrence: None)
  Receive Date: 20070726
  Receipt Date: 20061208
  Transmission Date: 20080115
  Serious: No
  Sender: FDA-Public Use
  Company Number: US-AMGEN-KDL203269

PATIENT
  Sex: Male
  Weight: 52.2 kg

DRUGS (5)
  1. PROCRIT [Suspect]
     Indication: ANAEMIA
     Route: 058
     Dates: start: 20061130
  2. ENALAPRIL MALEATE [Concomitant]
     Route: 048
     Dates: start: 20060101
  3. DILACOR XR [Concomitant]
     Route: 048
     Dates: start: 20060601
  4. IRON [Concomitant]
     Route: 048
     Dates: start: 20060101
  5. ALBUTEROL [Concomitant]
     Dates: start: 20060101

REACTIONS (1)
  - ASTHMA [None]
